FAERS Safety Report 8013284-8 (Version None)
Quarter: 2011Q4

REPORT INFORMATION
  Report Type: 
  Country: None (occurrence: None)
  Receive Date: 20111229
  Receipt Date: 20111221
  Transmission Date: 20120403
  Serious: Yes (Other)
  Sender: FDA-Public Use
  Company Number: US-AMGEN-USASP2011068304

PATIENT
  Age: 64 Year
  Sex: Male

DRUGS (3)
  1. MORPHINE [Concomitant]
     Dosage: UNK
  2. METHOTREXATE [Concomitant]
     Dosage: 1 MG, QWK
     Dates: start: 20070101
  3. ENBREL [Suspect]
     Indication: ANKYLOSING SPONDYLITIS
     Dosage: 50 MG, QWK
     Dates: start: 20071101

REACTIONS (6)
  - BACK PAIN [None]
  - PLATELET COUNT DECREASED [None]
  - OPTIC ATROPHY [None]
  - EYE DISORDER [None]
  - IRITIS [None]
  - ANKYLOSING SPONDYLITIS [None]
